FAERS Safety Report 24827946 (Version 1)
Quarter: 2025Q1

REPORT INFORMATION
  Report Type: Spontaneous
  Country: FR (occurrence: FR)
  Receive Date: 20250109
  Receipt Date: 20250109
  Transmission Date: 20250408
  Serious: Yes (Other)
  Sender: PFIZER
  Company Number: FR-GILEAD-2020-0483327

PATIENT
  Sex: Male

DRUGS (3)
  1. RIFABUTIN [Suspect]
     Active Substance: RIFABUTIN
     Indication: Product used for unknown indication
     Route: 065
  2. BIKTARVY [Suspect]
     Active Substance: BICTEGRAVIR SODIUM\EMTRICITABINE\TENOFOVIR ALAFENAMIDE FUMARATE
     Indication: Product used for unknown indication
     Route: 065
  3. DORAVIRINE [Concomitant]
     Active Substance: DORAVIRINE

REACTIONS (4)
  - Tuberculosis [Not Recovered/Not Resolved]
  - Disease recurrence [Not Recovered/Not Resolved]
  - Immune reconstitution inflammatory syndrome [Recovering/Resolving]
  - Pyrexia [Recovering/Resolving]

NARRATIVE: CASE EVENT DATE: 20200701
